FAERS Safety Report 9842896 (Version 1)
Quarter: 2013Q4

REPORT INFORMATION
  Report Type: Spontaneous
  Country: US (occurrence: None)
  Receive Date: 20131223
  Receipt Date: 20131223
  Transmission Date: 20140711
  Serious: Yes (Other)
  Sender: FDA-Public Use
  Company Number: 220404LEO

PATIENT
  Age: 60 Year
  Sex: Female

DRUGS (3)
  1. PICATO [Suspect]
     Indication: ACTINIC KERATOSIS
     Route: 062
     Dates: start: 20130203
  2. LEVOXYL (LEVOTHYROXINE SODIUM) [Concomitant]
  3. METOPROLOL (METOPROLOL) [Concomitant]

REACTIONS (4)
  - Application site erythema [None]
  - Application site pain [None]
  - Application site paraesthesia [None]
  - Skin tightness [None]
